FAERS Safety Report 9756201 (Version 2)
Quarter: 2014Q1

REPORT INFORMATION
  Report Type: Spontaneous
  Country: IT (occurrence: IT)
  Receive Date: 20131213
  Receipt Date: 20140225
  Transmission Date: 20141002
  Serious: Yes (Other)
  Sender: FDA-Public Use
  Company Number: IT-BRISTOL-MYERS SQUIBB COMPANY-19879600

PATIENT
  Age: 75 Year
  Sex: Female

DRUGS (6)
  1. COUMADIN TABS 5 MG [Suspect]
     Indication: ISCHAEMIC STROKE
     Dosage: 1DF-1UNIT?INTER-14NV13
     Route: 048
     Dates: start: 20130101
  2. BISOPROLOL HEMIFUMARATE [Concomitant]
     Route: 048
  3. LANOXIN [Concomitant]
     Dosage: 0.125 MG TABS?1DF- 1UNIT
     Route: 048
  4. TRIATEC [Concomitant]
     Dosage: TRIATEC 2.5MG TABS?1DF= 1UNIT
     Route: 048
  5. NEXIUM [Concomitant]
     Route: 048
  6. SINTROM [Concomitant]
     Route: 048

REACTIONS (4)
  - Anaemia megaloblastic [Recovering/Resolving]
  - International normalised ratio increased [Recovering/Resolving]
  - Melaena [Recovering/Resolving]
  - Overdose [Unknown]
